FAERS Safety Report 20680144 (Version 2)
Quarter: 2022Q2

REPORT INFORMATION
  Report Type: Spontaneous
  Country: NL (occurrence: NL)
  Receive Date: 20220406
  Receipt Date: 20220412
  Transmission Date: 20220721
  Serious: Yes (Death, Hospitalization, Other)
  Sender: FDA-Public Use
  Company Number: NL-GILEAD-2022-0576064

PATIENT
  Age: 33 Year
  Sex: Female

DRUGS (10)
  1. AMBISOME [Suspect]
     Active Substance: AMPHOTERICIN B
     Indication: Disseminated aspergillosis
     Dosage: UNK
     Route: 042
     Dates: start: 20211222, end: 20211224
  2. AMBISOME [Suspect]
     Active Substance: AMPHOTERICIN B
     Indication: Aspergillus infection
  3. VEKLURY [Suspect]
     Active Substance: REMDESIVIR
     Indication: COVID-19
     Dosage: UNK
     Route: 042
     Dates: start: 20201107
  4. COVID-19 CONVALESCENT PLASMA [Concomitant]
     Active Substance: COVID-19 CONVALESCENT PLASMA
     Dosage: UNK
     Dates: start: 20201107
  5. ALEMTUZUMAB [Concomitant]
     Active Substance: ALEMTUZUMAB
     Dosage: UNK
     Dates: start: 20201018
  6. OXYGEN [Concomitant]
     Active Substance: OXYGEN
  7. PREDNISONE [Concomitant]
     Active Substance: PREDNISONE
     Dosage: UNK
     Dates: start: 20211117, end: 20211224
  8. ANAKINRA [Concomitant]
     Active Substance: ANAKINRA
     Dosage: UNK
     Dates: start: 20211128, end: 20211128
  9. UNSPECIFIED INGREDIENT [Concomitant]
     Active Substance: UNSPECIFIED INGREDIENT
     Dosage: UNK
     Dates: start: 20211213, end: 20211213
  10. TACROLIMUS [Concomitant]
     Active Substance: TACROLIMUS
     Dosage: UNK
     Dates: start: 20211117, end: 20211214

REACTIONS (13)
  - Multiple organ dysfunction syndrome [Fatal]
  - Osteonecrosis [Unknown]
  - Respiratory syncytial virus infection [Unknown]
  - Disseminated aspergillosis [Not Recovered/Not Resolved]
  - Respiratory failure [Unknown]
  - Hypoxia [Unknown]
  - Drug ineffective [Unknown]
  - Respiratory failure [Unknown]
  - Bronchopulmonary aspergillosis [Unknown]
  - Kidney transplant rejection [Unknown]
  - Urinary tract infection bacterial [Unknown]
  - Skin mass [Unknown]
  - Arthralgia [Unknown]

NARRATIVE: CASE EVENT DATE: 20201115
